FAERS Safety Report 16300662 (Version 2)
Quarter: 2020Q4

REPORT INFORMATION
  Report Type: Spontaneous
  Country: US (occurrence: US)
  Receive Date: 20190510
  Receipt Date: 20201121
  Transmission Date: 20210113
  Serious: Yes (Other)
  Sender: FDA-Public Use
  Company Number: PHEH2019US020224

PATIENT
  Sex: Female

DRUGS (1)
  1. TASIGNA [Suspect]
     Active Substance: NILOTINIB
     Indication: CHRONIC MYELOID LEUKAEMIA
     Dosage: 400 MG, BID
     Route: 065
     Dates: start: 20101221, end: 201809

REACTIONS (15)
  - Anxiety [Unknown]
  - Peripheral vascular disorder [Unknown]
  - Palpitations [Unknown]
  - Chronic left ventricular failure [Unknown]
  - Dizziness [Unknown]
  - Dyspnoea [Unknown]
  - Muscular weakness [Unknown]
  - Psoriasis [Unknown]
  - Pain [Unknown]
  - Cardiac murmur [Unknown]
  - Fatigue [Unknown]
  - Hepatic cirrhosis [Unknown]
  - Emotional distress [Unknown]
  - Mitral valve stenosis [Unknown]
  - Arthralgia [Unknown]
